FAERS Safety Report 16094076 (Version 1)
Quarter: 2019Q1

REPORT INFORMATION
  Report Type: Spontaneous
  Country: US (occurrence: US)
  Receive Date: 20190215
  Receipt Date: 20190215
  Transmission Date: 20190418
  Serious: Yes (Death, Life-Threatening, Hospitalization, Disabling, Other)
  Sender: FDA-Public Use
  Company Number: None

PATIENT
  Age: 47 Year
  Sex: Male

DRUGS (1)
  1. OPDIVO [Suspect]
     Active Substance: NIVOLUMAB
     Indication: HEPATIC CANCER METASTATIC
     Dosage: ?          OTHER FREQUENCY:ONCE DAY EVERY TWO;?

REACTIONS (9)
  - Infusion related reaction [None]
  - Skin discolouration [None]
  - Skin lesion [None]
  - Back pain [None]
  - Paracentesis [None]
  - Rash [None]
  - Blister [None]
  - Pain in extremity [None]
  - Hernia [None]
